FAERS Safety Report 8121083-1 (Version None)
Quarter: 2012Q1

REPORT INFORMATION
  Report Type: 
  Country: None (occurrence: None)
  Receive Date: 20120208
  Receipt Date: 20120130
  Transmission Date: 20120608
  Serious: No
  Sender: FDA-Public Use
  Company Number: FR-JNJFOC-20111008768

PATIENT
  Sex: Female

DRUGS (11)
  1. REQUIP [Concomitant]
     Indication: PRODUCT USED FOR UNKNOWN INDICATION
     Route: 048
  2. DURAGESIC-100 [Suspect]
     Dosage: THEN 1 PATCH PER DAY
     Route: 062
  3. DURAGESIC-100 [Suspect]
     Dosage: 12.5 6.25  12.5 MCG/HR 1.5 PATCHES EVERY 3 DAYS
     Route: 062
  4. ASPIRIN [Concomitant]
     Indication: PRODUCT USED FOR UNKNOWN INDICATION
     Route: 048
  5. LANSOPRAZOLE [Concomitant]
     Indication: PRODUCT USED FOR UNKNOWN INDICATION
     Route: 048
  6. ANAFRANIL [Concomitant]
     Indication: PRODUCT USED FOR UNKNOWN INDICATION
     Route: 048
  7. MODOPAR [Concomitant]
     Indication: PRODUCT USED FOR UNKNOWN INDICATION
     Dosage: 125 DISPERSIVE: 1/2/1     125 LP *2 IN THE EVENING
     Route: 048
  8. DURAGESIC-100 [Suspect]
     Dosage: AND THEN 1.5 PATCHES PER DAY
     Route: 062
  9. DIHYDROERGOTAMINE MESYLATE [Concomitant]
     Indication: PRODUCT USED FOR UNKNOWN INDICATION
     Route: 048
  10. DURAGESIC-100 [Suspect]
     Indication: PAIN
     Dosage: APPLICATION OF 0.5 PATCHES, THEN 1 PATCH THEN 1.5 PATCHES DAILY    (0.5 PATCHES PER DAY)
     Route: 062
  11. XANAX [Concomitant]
     Indication: PRODUCT USED FOR UNKNOWN INDICATION
     Route: 048

REACTIONS (2)
  - DRUG PRESCRIBING ERROR [None]
  - WRONG TECHNIQUE IN DRUG USAGE PROCESS [None]
